FAERS Safety Report 4948969-0 (Version None)
Quarter: 2006Q1

REPORT INFORMATION
  Report Type: 
  Country: None (occurrence: None)
  Receive Date: 20060315
  Receipt Date: 20060223
  Transmission Date: 20060701
  Serious: Yes (Hospitalization, Other)
  Sender: FDA-Public Use
  Company Number: US200601003463

PATIENT
  Sex: Female
  Weight: 61.2 kg

DRUGS (9)
  1. FORTEO [Suspect]
     Indication: OSTEOPOROSIS
     Dosage: SEE IMAGE
     Dates: start: 20051001, end: 20051213
  2. FORTEO [Suspect]
     Indication: OSTEOPOROSIS
     Dosage: SEE IMAGE
     Dates: start: 20050117
  3. FUROSEMIDE [Concomitant]
  4. SINGULAIR ^MERCK^ (MONTELUKAST SODIUM) [Concomitant]
  5. VITAMIN B12 [Concomitant]
  6. ZOLOFT [Concomitant]
  7. ATENOLOL [Concomitant]
  8. NEXIUM [Concomitant]
  9. ZAROXOLYN [Concomitant]

REACTIONS (14)
  - ABDOMINAL PAIN UPPER [None]
  - BLOOD POTASSIUM DECREASED [None]
  - GALLBLADDER DISORDER [None]
  - HAEMORRHAGE [None]
  - HEPATIC CIRRHOSIS [None]
  - INJECTION SITE BRUISING [None]
  - INJECTION SITE DISCOLOURATION [None]
  - INJECTION SITE HAEMORRHAGE [None]
  - LUNG INFECTION [None]
  - MEDICAL DEVICE SITE REACTION [None]
  - PHARMACEUTICAL PRODUCT COMPLAINT [None]
  - PROCEDURAL COMPLICATION [None]
  - RESPIRATION ABNORMAL [None]
  - THYROID DISORDER [None]
